FAERS Safety Report 16479272 (Version 1)
Quarter: 2019Q2

REPORT INFORMATION
  Report Type: Spontaneous
  Country: US (occurrence: US)
  Receive Date: 20190626
  Receipt Date: 20190626
  Transmission Date: 20190711
  Serious: Yes (Other)
  Sender: FDA-Public Use
  Company Number: US-SAOL THERAPEUTICS-2019SAO00187

PATIENT
  Sex: Male

DRUGS (1)
  1. LIORESAL [Suspect]
     Active Substance: BACLOFEN
     Dosage: 800.6 ?G, \DAY
     Route: 037

REACTIONS (3)
  - Muscle tightness [Recovered/Resolved]
  - Hypotonia [Recovered/Resolved]
  - Muscle spasticity [Recovered/Resolved]
